FAERS Safety Report 6540651-1 (Version None)
Quarter: 2010Q1

REPORT INFORMATION
  Report Type: 
  Country: None (occurrence: None)
  Receive Date: 20100118
  Receipt Date: 20100107
  Transmission Date: 20100710
  Serious: Yes (Other)
  Sender: FDA-Public Use
  Company Number: US-ELI_LILLY_AND_COMPANY-US201001001465

PATIENT
  Sex: Female

DRUGS (1)
  1. EVISTA [Suspect]
     Indication: OSTEOPOROSIS
     Dosage: UNK, OTHER
     Route: 065

REACTIONS (7)
  - CATARACT [None]
  - FRACTURE [None]
  - HIP FRACTURE [None]
  - INTENTIONAL DRUG MISUSE [None]
  - LOWER LIMB FRACTURE [None]
  - MOVEMENT DISORDER [None]
  - UPPER LIMB FRACTURE [None]
